FAERS Safety Report 6027176-7 (Version None)
Quarter: 2009Q1

REPORT INFORMATION
  Report Type: 
  Country: None (occurrence: None)
  Receive Date: 20090105
  Receipt Date: 20081201
  Transmission Date: 20090719
  Serious: Yes (Other)
  Sender: FDA-Public Use
  Company Number: IE-PFIZER INC-2008096584

PATIENT

DRUGS (5)
  1. CHAMPIX [Suspect]
     Route: 048
     Dates: start: 20081014, end: 20081023
  2. NU-SEALS ASPIRIN [Concomitant]
  3. PLAVIX [Concomitant]
  4. ISOPTIN [Concomitant]
  5. ANXICALM [Concomitant]

REACTIONS (4)
  - ABNORMAL DREAMS [None]
  - DIZZINESS [None]
  - FEELING DRUNK [None]
  - PANIC REACTION [None]
